FAERS Safety Report 5116441-3 (Version None)
Quarter: 2006Q3

REPORT INFORMATION
  Report Type: 
  Country: None (occurrence: None)
  Receive Date: 20060925
  Receipt Date: 20060914
  Transmission Date: 20061208
  Serious: Yes (Death)
  Sender: FDA-Public Use
  Company Number: B0438954A

PATIENT
  Age: 18 Year
  Sex: Male

DRUGS (2)
  1. WELLBUTRIN [Suspect]
  2. CARBAMAZEPINE [Suspect]

REACTIONS (2)
  - COMPLETED SUICIDE [None]
  - DRUG TOXICITY [None]
